FAERS Safety Report 6382717-5 (Version None)
Quarter: 2009Q3

REPORT INFORMATION
  Report Type: 
  Country: None (occurrence: None)
  Receive Date: 20090930
  Receipt Date: 20090921
  Transmission Date: 20100115
  Serious: Yes (Death)
  Sender: FDA-Public Use
  Company Number: GB-TEVA-209866ISR

PATIENT
  Age: 53 Year
  Sex: Male
  Weight: 56 kg

DRUGS (6)
  1. CISPLATIN [Suspect]
     Route: 042
     Dates: start: 20090330
  2. FLUOROURACIL [Suspect]
     Route: 042
  3. FLUOROURACIL [Suspect]
     Route: 042
     Dates: start: 20090331
  4. FLUOROURACIL [Suspect]
     Route: 042
     Dates: start: 20090401
  5. FLUOROURACIL [Suspect]
     Route: 042
     Dates: start: 20090402
  6. DOCETAXEL [Suspect]
     Route: 042
     Dates: start: 20090330

REACTIONS (2)
  - ARRHYTHMIA [None]
  - DRUG TOXICITY [None]
